FAERS Safety Report 21853620 (Version 1)
Quarter: 2023Q1

REPORT INFORMATION
  Report Type: Spontaneous
  Country: US (occurrence: US)
  Receive Date: 20230112
  Receipt Date: 20230112
  Transmission Date: 20230417
  Serious: No
  Sender: FDA-Public Use
  Company Number: US-BRISTOL-MYERS SQUIBB COMPANY-2023-004977

PATIENT
  Age: 84 Year
  Sex: Female

DRUGS (2)
  1. REVLIMID [Suspect]
     Active Substance: LENALIDOMIDE
     Indication: Diffuse large B-cell lymphoma
     Route: 048
     Dates: start: 20220513
  2. MONJUVI [Suspect]
     Active Substance: TAFASITAMAB-CXIX
     Indication: Product used for unknown indication

REACTIONS (2)
  - Vision blurred [Unknown]
  - Hypoacusis [Unknown]
